FAERS Safety Report 5697331-4 (Version None)
Quarter: 2008Q2

REPORT INFORMATION
  Report Type: 
  Country: None (occurrence: None)
  Receive Date: 20080408
  Receipt Date: 20070906
  Transmission Date: 20081010
  Serious: No
  Sender: FDA-Public Use
  Company Number: US-BAYER-US-2007-034032

PATIENT
  Age: 16 Year
  Sex: Female
  Weight: 57 kg

DRUGS (4)
  1. YASMIN [Suspect]
     Indication: CONTRACEPTION
     Route: 048
     Dates: start: 20070701, end: 20070801
  2. ^PRILETTAL^ [Concomitant]
     Indication: CONVULSION
  3. CONCERTA [Concomitant]
     Indication: ATTENTION DEFICIT/HYPERACTIVITY DISORDER
  4. CLONOPIN [Concomitant]
     Indication: SLEEP DISORDER

REACTIONS (4)
  - BACK PAIN [None]
  - MENSTRUATION IRREGULAR [None]
  - MOOD SWINGS [None]
  - PAIN IN EXTREMITY [None]
